FAERS Safety Report 7098499-8 (Version None)
Quarter: 2010Q4

REPORT INFORMATION
  Report Type: 
  Country: None (occurrence: None)
  Receive Date: 20101112
  Receipt Date: 20101101
  Transmission Date: 20110411
  Serious: Yes (Death, Life-Threatening)
  Sender: FDA-Public Use
  Company Number: DE-SANOFI-AVENTIS-2010SA066254

PATIENT
  Age: 66 Year
  Sex: Female

DRUGS (1)
  1. CLEXANE [Suspect]
     Route: 042
     Dates: end: 20100101

REACTIONS (1)
  - PULMONARY EMBOLISM [None]
